FAERS Safety Report 10620003 (Version 2)
Quarter: 2014Q4

REPORT INFORMATION
  Report Type: Spontaneous
  Country: JP (occurrence: None)
  Receive Date: 20141128
  Receipt Date: 20141219
  Transmission Date: 20150529
  Serious: Yes (Death, Hospitalization)
  Sender: FDA-Public Use
  Company Number: PIN-2014-00014

PATIENT
  Age: 67 Year
  Sex: Male
  Weight: 47.5 kg

DRUGS (7)
  1. PHOTOFRIN [Suspect]
     Active Substance: PORFIMER SODIUM
     Indication: OESOPHAGEAL CARCINOMA
     Dosage: 95 MG (2 MG/KG)
     Route: 042
     Dates: start: 20140128
  2. CINAL (ASCORBIC ACID, CALCIUM PANTOTHENATE) [Concomitant]
  3. GASTROM (ECABET MONOSODIUM) [Concomitant]
  4. PARIET (RABEPRAZOLE SODIUM) [Concomitant]
  5. KENACORT [Suspect]
     Active Substance: TRIAMCINOLONE
     Indication: OESOPHAGEAL STENOSIS
     Dates: start: 20140206, end: 20140206
  6. ALLOID G (SODIUM ALGINATE) [Concomitant]
  7. SOSEGON (PENTAZOCINE HYDROCHLORIDE) [Concomitant]

REACTIONS (8)
  - Blood pressure decreased [None]
  - Haematemesis [None]
  - Oesophageal haemorrhage [None]
  - Oesophageal stenosis [None]
  - Oesophageal perforation [None]
  - Shock haemorrhagic [None]
  - Cardio-respiratory distress [None]
  - Cardiac arrest [None]

NARRATIVE: CASE EVENT DATE: 20140227
